FAERS Safety Report 9505982 (Version 1)
Quarter: 2013Q1

REPORT INFORMATION
  Report Type: Spontaneous
  Country: US (occurrence: None)
  Receive Date: 20130305
  Receipt Date: 20130305
  Transmission Date: 20140127
  Serious: Yes (Other)
  Sender: FDA-Public Use
  Company Number: 163-21880-11080459

PATIENT
  Sex: 0

DRUGS (2)
  1. REVLIMID (LENALIDOMIDE) [Suspect]
     Indication: MYELODYSPLASTIC SYNDROME
     Route: 048
     Dates: start: 20110121, end: 20110316
  2. LEVOQUIN (LEVOFLOXACIN) [Suspect]

REACTIONS (2)
  - Neutropenia [None]
  - Drug ineffective [None]
